FAERS Safety Report 8964500 (Version 8)
Quarter: 2014Q1

REPORT INFORMATION
  Report Type: Spontaneous
  Country: US (occurrence: US)
  Receive Date: 20121214
  Receipt Date: 20140225
  Transmission Date: 20141002
  Serious: Yes (Hospitalization, Other)
  Sender: FDA-Public Use
  Company Number: US-009507513-1212USA005269

PATIENT
  Sex: Female
  Weight: 59.86 kg

DRUGS (5)
  1. FOSAMAX [Suspect]
     Indication: OSTEOPOROSIS
     Dosage: 70 MG, QW
     Route: 048
     Dates: start: 20011116
  2. PAXIL [Concomitant]
     Indication: GENERALISED ANXIETY DISORDER
     Dosage: 10 MG, UNK
  3. EVISTA [Concomitant]
     Indication: OSTEOPOROSIS
     Dosage: UNK
     Dates: start: 2010
  4. FORTEO [Concomitant]
     Indication: OSTEOPOROSIS
     Dosage: 20 MICROGRAM, QD
     Dates: start: 201006
  5. ALENDRONATE SODIUM [Suspect]
     Dosage: 70 MG, UNK
     Route: 048
     Dates: start: 20070303, end: 20080131

REACTIONS (47)
  - Femoral neck fracture [Recovered/Resolved]
  - Intramedullary rod insertion [Recovering/Resolving]
  - Spinal rod insertion [Unknown]
  - Bone graft [Unknown]
  - Respiratory failure [Unknown]
  - Intraductal proliferative breast lesion [Unknown]
  - Spinal compression fracture [Recovering/Resolving]
  - Knee arthroplasty [Unknown]
  - Dependence on respirator [Unknown]
  - Fluid overload [Unknown]
  - Impaired healing [Recovering/Resolving]
  - Fracture delayed union [Unknown]
  - Fracture delayed union [Recovering/Resolving]
  - Osteoarthritis [Unknown]
  - Osteoarthritis [Not Recovered/Not Resolved]
  - Bursitis [Recovered/Resolved]
  - Confusional state [Unknown]
  - Glaucoma [Unknown]
  - Iridectomy [Unknown]
  - Excoriation [Unknown]
  - Cataract [Unknown]
  - Cardiac murmur [Unknown]
  - Hypertension [Unknown]
  - Uterine prolapse [Unknown]
  - Depression [Unknown]
  - Breast lump removal [Unknown]
  - Benign breast neoplasm [Unknown]
  - Arthritis [Not Recovered/Not Resolved]
  - Arthroscopy [Unknown]
  - Meniscus removal [Unknown]
  - Insomnia [Unknown]
  - Eczema [Unknown]
  - Diverticulum [Unknown]
  - Haemangioma [Unknown]
  - Local swelling [Unknown]
  - Forearm fracture [Unknown]
  - Benign breast lump removal [Unknown]
  - Wrist fracture [Unknown]
  - Knee deformity [Unknown]
  - Hip deformity [Unknown]
  - Osteopenia [Unknown]
  - Gastrooesophageal reflux disease [Unknown]
  - Gastritis [Unknown]
  - Oesophagitis [Unknown]
  - Gastrooesophageal reflux disease [Unknown]
  - Treatment failure [Unknown]
  - Treatment failure [Unknown]
